FAERS Safety Report 10149705 (Version 2)
Quarter: 2014Q2

REPORT INFORMATION
  Report Type: Spontaneous
  Country: DE (occurrence: DE)
  Receive Date: 20140502
  Receipt Date: 20140603
  Transmission Date: 20141212
  Serious: Yes (Other)
  Sender: FDA-Public Use
  Company Number: DE-JNJFOC-20140420651

PATIENT
  Age: 84 Year
  Sex: Female

DRUGS (3)
  1. XARELTO [Suspect]
     Indication: ATRIAL FIBRILLATION
     Route: 048
  2. XARELTO [Suspect]
     Indication: CEREBROVASCULAR ACCIDENT PROPHYLAXIS
     Route: 048
  3. ASS [Concomitant]
     Indication: HYPERTENSION
     Route: 065

REACTIONS (3)
  - Dizziness [Unknown]
  - Rash pruritic [Unknown]
  - Gait disturbance [Unknown]
